FAERS Safety Report 16860503 (Version 2)
Quarter: 2019Q3

REPORT INFORMATION
  Report Type: Report from Study
  Country: IL (occurrence: IL)
  Receive Date: 20190927
  Receipt Date: 20190930
  Transmission Date: 20191005
  Serious: Yes (Hospitalization)
  Sender: FDA-Public Use
  Company Number: IL-ASTRAZENECA-2019SF31553

PATIENT
  Age: 45 Year
  Sex: Female

DRUGS (12)
  1. AZD9150 [Suspect]
     Active Substance: DANVATIRSEN
     Indication: NON-SMALL CELL LUNG CANCER METASTATIC
     Dosage: 200 MG
     Route: 042
     Dates: start: 20190414, end: 20190414
  2. AZD9150 [Suspect]
     Active Substance: DANVATIRSEN
     Indication: NON-SMALL CELL LUNG CANCER METASTATIC
     Dosage: 200 MG
     Route: 042
     Dates: start: 20190527, end: 20190527
  3. AZD9150 [Suspect]
     Active Substance: DANVATIRSEN
     Indication: NON-SMALL CELL LUNG CANCER METASTATIC
     Dosage: 200 MG
     Route: 042
     Dates: start: 20190610, end: 20190610
  4. AZD9150 [Suspect]
     Active Substance: DANVATIRSEN
     Indication: NON-SMALL CELL LUNG CANCER METASTATIC
     Dosage: 200 MG
     Route: 042
     Dates: start: 20190418, end: 20190418
  5. MEDI4736 [Suspect]
     Active Substance: DURVALUMAB
     Indication: NON-SMALL CELL LUNG CANCER METASTATIC
     Dosage: 1500 MG
     Route: 042
     Dates: start: 20190422, end: 20190422
  6. AZD9150 [Suspect]
     Active Substance: DANVATIRSEN
     Indication: NON-SMALL CELL LUNG CANCER METASTATIC
     Dosage: 200 MG
     Route: 042
     Dates: start: 20190416, end: 20190416
  7. AZD9150 [Suspect]
     Active Substance: DANVATIRSEN
     Indication: NON-SMALL CELL LUNG CANCER METASTATIC
     Dosage: 200 MG
     Route: 042
     Dates: start: 20190422, end: 20190422
  8. AZD9150 [Suspect]
     Active Substance: DANVATIRSEN
     Indication: NON-SMALL CELL LUNG CANCER METASTATIC
     Dosage: 200 MG
     Route: 042
     Dates: start: 20190506, end: 20190506
  9. AZD9150 [Suspect]
     Active Substance: DANVATIRSEN
     Indication: NON-SMALL CELL LUNG CANCER METASTATIC
     Dosage: 200 MG
     Route: 042
     Dates: start: 20190513, end: 20190513
  10. AZD9150 [Suspect]
     Active Substance: DANVATIRSEN
     Indication: NON-SMALL CELL LUNG CANCER METASTATIC
     Dosage: 200 MG
     Route: 042
     Dates: start: 20190429, end: 20190429
  11. MEDI4736 [Suspect]
     Active Substance: DURVALUMAB
     Indication: NON-SMALL CELL LUNG CANCER METASTATIC
     Dosage: 1500 MG
     Route: 042
     Dates: start: 20190522, end: 20190522
  12. AZD9150 [Suspect]
     Active Substance: DANVATIRSEN
     Indication: NON-SMALL CELL LUNG CANCER METASTATIC
     Dosage: 200 MG
     Route: 042
     Dates: start: 20190522, end: 20190522

REACTIONS (1)
  - Haemoptysis [Not Recovered/Not Resolved]

NARRATIVE: CASE EVENT DATE: 20190913
